FAERS Safety Report 11559897 (Version 4)
Quarter: 2015Q4

REPORT INFORMATION
  Report Type: Spontaneous
  Country: US (occurrence: US)
  Receive Date: 20150928
  Receipt Date: 20151023
  Transmission Date: 20160304
  Serious: Yes (Death, Hospitalization, Other)
  Sender: FDA-Public Use
  Company Number: US-UNITED THERAPEUTICS-UNT-2015-009736

PATIENT
  Age: 72 Year
  Sex: Male
  Weight: 66.67 kg

DRUGS (3)
  1. REMODULIN [Suspect]
     Active Substance: TREPROSTINIL
     Indication: PULMONARY HYPERTENSION
     Dosage: 0.036 ?G/KG/MIN, CONTINUING
     Route: 058
     Dates: start: 20150408
  2. REMODULIN [Suspect]
     Active Substance: TREPROSTINIL
     Dosage: 0.042 ?G/KG, CONTINUING
     Route: 058
  3. REMODULIN [Suspect]
     Active Substance: TREPROSTINIL
     Dosage: 0.045 ?G/KG, CONTINUING
     Route: 058

REACTIONS (14)
  - Intestinal perforation [Unknown]
  - Infusion site nodule [Unknown]
  - Skin lesion [Unknown]
  - Diarrhoea [Unknown]
  - Infusion site erythema [Unknown]
  - Walking distance test abnormal [Unknown]
  - Device dislocation [Unknown]
  - Drug dose omission [Unknown]
  - Skin cancer [Unknown]
  - Pain in extremity [Unknown]
  - Decreased appetite [Unknown]
  - Death [Fatal]
  - Infusion site oedema [Unknown]
  - Infusion site pain [Unknown]

NARRATIVE: CASE EVENT DATE: 201508
